FAERS Safety Report 7340957-2 (Version None)
Quarter: 2011Q1

REPORT INFORMATION
  Report Type: 
  Country: None (occurrence: None)
  Receive Date: 20110309
  Receipt Date: 20100920
  Transmission Date: 20110831
  Serious: No
  Sender: FDA-Public Use
  Company Number: US-ABBOTT-10P-163-0672742-00

PATIENT
  Sex: Female
  Weight: 154.36 kg

DRUGS (5)
  1. VITAMIN B-12 [Concomitant]
     Indication: PRODUCT USED FOR UNKNOWN INDICATION
  2. LUPRON DEPOT [Suspect]
     Route: 050
     Dates: start: 20100310
  3. ZOLOFT [Concomitant]
     Indication: DEPRESSION
  4. LUPRON DEPOT [Suspect]
     Indication: ENDOMETRIOSIS
     Route: 050
     Dates: start: 20100201, end: 20100301
  5. ZOLOFT [Concomitant]
     Indication: ANGER

REACTIONS (2)
  - INAPPROPRIATE SCHEDULE OF DRUG ADMINISTRATION [None]
  - BREAKTHROUGH PAIN [None]
